FAERS Safety Report 24983657 (Version 1)
Quarter: 2025Q1

REPORT INFORMATION
  Report Type: Spontaneous
  Country: US (occurrence: US)
  Receive Date: 20250219
  Receipt Date: 20250219
  Transmission Date: 20250408
  Serious: No
  Sender: BIOGEN
  Company Number: US-BIOGEN-2023BI01227172

PATIENT
  Age: 59 Year
  Sex: Female

DRUGS (15)
  1. VUMERITY [Suspect]
     Active Substance: DIROXIMEL FUMARATE
     Indication: Multiple sclerosis
     Route: 050
     Dates: start: 20210606, end: 20210612
  2. VUMERITY [Suspect]
     Active Substance: DIROXIMEL FUMARATE
     Route: 050
     Dates: start: 20231013
  3. VUMERITY [Suspect]
     Active Substance: DIROXIMEL FUMARATE
     Route: 050
     Dates: start: 20210613, end: 20230424
  4. VUMERITY [Suspect]
     Active Substance: DIROXIMEL FUMARATE
     Route: 050
     Dates: start: 20230425
  5. ATORVASTATIN CALCIUM [Concomitant]
     Active Substance: ATORVASTATIN CALCIUM
     Route: 050
  6. CARVEDILOL [Concomitant]
     Active Substance: CARVEDILOL
     Route: 050
  7. BACLOFEN [Concomitant]
     Active Substance: BACLOFEN
     Route: 050
  8. ATIVAN [Concomitant]
     Active Substance: LORAZEPAM
     Route: 050
  9. EFFEXOR XR [Concomitant]
     Active Substance: VENLAFAXINE HYDROCHLORIDE
     Route: 050
  10. FUROSEMIDE [Concomitant]
     Active Substance: FUROSEMIDE
     Route: 050
  11. JARDIANCE [Concomitant]
     Active Substance: EMPAGLIFLOZIN
     Route: 050
  12. TRULICITY [Concomitant]
     Active Substance: DULAGLUTIDE
     Route: 050
  13. VITAMIN D3 [Concomitant]
     Active Substance: CHOLECALCIFEROL
     Route: 050
  14. PLAVIX [Concomitant]
     Active Substance: CLOPIDOGREL BISULFATE
     Route: 050
  15. CYMBALTA [Concomitant]
     Active Substance: DULOXETINE HYDROCHLORIDE
     Route: 050

REACTIONS (3)
  - Magnetic resonance imaging abnormal [Unknown]
  - White blood cell count decreased [Unknown]
  - Central nervous system lesion [Unknown]

NARRATIVE: CASE EVENT DATE: 20230424
